FAERS Safety Report 23470373 (Version 1)
Quarter: 2024Q1

REPORT INFORMATION
  Report Type: Spontaneous
  Country: JP (occurrence: JP)
  Receive Date: 20240202
  Receipt Date: 20240202
  Transmission Date: 20240409
  Serious: Yes (Hospitalization, Other)
  Sender: FDA-Public Use
  Company Number: JP-Eisai-202308541_DVG_P_1

PATIENT
  Age: 55 Year
  Sex: Male

DRUGS (9)
  1. DAYVIGO [Suspect]
     Active Substance: LEMBOREXANT
     Indication: Insomnia
     Route: 048
     Dates: end: 20231017
  2. DAYVIGO [Suspect]
     Active Substance: LEMBOREXANT
     Dosage: TOOK 50 TABLETS OF 5 MG.
     Route: 048
     Dates: start: 20231017, end: 20231017
  3. DAYVIGO [Suspect]
     Active Substance: LEMBOREXANT
     Dosage: DOSE AND FREQUENCY UNKNOWN.
     Route: 048
     Dates: start: 202310
  4. PAXIL CR [Concomitant]
     Active Substance: PAROXETINE HYDROCHLORIDE
     Indication: Product used for unknown indication
     Dosage: AFTER DINNER.
     Route: 048
  5. SULPIRIDE [Concomitant]
     Active Substance: SULPIRIDE
     Indication: Product used for unknown indication
     Dosage: FREQUENCY UNKNOWN.
     Route: 048
  6. SULPIRIDE [Concomitant]
     Active Substance: SULPIRIDE
     Dosage: FREQUENCY UNKNOWN.
     Route: 048
  7. CLOXAZOLAM [Concomitant]
     Active Substance: CLOXAZOLAM
     Indication: Product used for unknown indication
     Dosage: DOSE AND FREQUENCY UNKNOWN.
     Route: 048
  8. MAGNESIUM OXIDE [Concomitant]
     Active Substance: MAGNESIUM OXIDE
     Indication: Product used for unknown indication
     Route: 048
  9. MILNACIPRAN HYDROCHLORIDE [Concomitant]
     Active Substance: MILNACIPRAN HYDROCHLORIDE
     Indication: Product used for unknown indication
     Route: 048

REACTIONS (3)
  - Suicide attempt [Unknown]
  - Somnolence [Recovered/Resolved]
  - Intentional overdose [Unknown]

NARRATIVE: CASE EVENT DATE: 20231001
